FAERS Safety Report 20375646 (Version 4)
Quarter: 2022Q2

REPORT INFORMATION
  Report Type: Spontaneous
  Country: US (occurrence: US)
  Receive Date: 20220125
  Receipt Date: 20220406
  Transmission Date: 20220721
  Serious: Yes (Hospitalization)
  Sender: FDA-Public Use
  Company Number: US-PARI RESPIRATORY EQUIPMENT, INC.-2022PAR00005

PATIENT
  Age: 29 Year
  Sex: Male
  Weight: 63.492 kg

DRUGS (32)
  1. KITABIS PAK [Suspect]
     Active Substance: TOBRAMYCIN
     Indication: Cystic fibrosis
     Dosage: INHALE 300 MG (5 ML) VIA NEBULIZER AS INSTRUCTED, 2X/DAY, 28 DAYS ON AND 28 DAYS OFF
  2. KITABIS PAK [Suspect]
     Active Substance: TOBRAMYCIN
     Indication: Lung disorder
  3. KITABIS PAK [Suspect]
     Active Substance: TOBRAMYCIN
     Indication: Bacterial disease carrier
  4. PULMOZYME [Concomitant]
     Active Substance: DORNASE ALFA
     Dosage: 2.5 ML (2.5 MG TOTAL) FOR USE IN NEBULIZER, 2X/DAY AS INSTRUCTED
  5. AVELOX [Concomitant]
     Active Substance: MOXIFLOXACIN HYDROCHLORIDE
  6. PEPTAMEN [Concomitant]
  7. TRIKAFTA [Concomitant]
     Active Substance: ELEXACAFTOR\IVACAFTOR\TEZACAFTOR
     Dosage: 2 ORANGE TABLETS IN THE MORNING AND 1 BLUE TABLET IN THE EVENING APPROXIMATELY 12 HOURS APART. TAKE
  8. ADVAIR HFA [Concomitant]
     Active Substance: FLUTICASONE PROPIONATE\SALMETEROL XINAFOATE
     Dosage: 2 INHALATIONS, 2X/DAY (RINSE MOUTH AFTER EACH USE)
  9. ACCUNEB [Concomitant]
     Active Substance: ALBUTEROL SULFATE
     Dosage: 0.63 MG AS INSTRUCTED, 2X/DAY
  10. ALBUTEROL SULFATE [Concomitant]
     Active Substance: ALBUTEROL SULFATE
     Dosage: 180 ?G (2 PUFFS TOTAL) IN LUNGS, EVERY 4 HOURS AS NEEDED (TWICE DAILY AND AS NEEDED)
  11. CATHFLO ACTIVASE [Concomitant]
     Active Substance: ALTEPLASE
     Dosage: 2 MG BY INTRACATHETER ROUTE, AS NEEDED
     Dates: end: 20211102
  12. AZELASTINE [Concomitant]
     Active Substance: AZELASTINE
     Dosage: 1-2 SPRAYS IN BOTH NOSTRILS, 1X/DAY
     Route: 045
     Dates: end: 20220118
  13. AZELASTINE [Concomitant]
     Active Substance: AZELASTINE
     Dosage: 1 SPRAY IN EACH NOSTRIL, 2X/DAY
     Route: 045
     Dates: start: 20220119
  14. ZITHROMAX [Concomitant]
     Active Substance: AZITHROMYCIN DIHYDRATE
     Dosage: 1 TABLET (500 MG), 3X/WEEK ON MONDAYS, WEDNESDAYS, AND FRIDAYS
     Route: 048
  15. CALCIUM CARBONATE [Concomitant]
     Active Substance: CALCIUM CARBONATE
     Dosage: 1 CAPSULE (500 MG TOTAL), 2X/DAY
     Route: 048
  16. VITAMIN D3 [Concomitant]
     Active Substance: CHOLECALCIFEROL
     Dosage: 1 DOSAGE UNITS, 2X/WEEK ON THURSDAYS AND SUNDAYS
     Route: 048
  17. BENZACLIN [Concomitant]
     Active Substance: BENZOYL PEROXIDE\CLINDAMYCIN PHOSPHATE
     Dosage: 1 APPLICATION TO AFFECTED AREA, 1X/DAY AS NEEDED
     Route: 061
  18. COLY-MYCIN M [Concomitant]
     Active Substance: COLISTIMETHATE SODIUM
     Dosage: 150 MG MIXED WITH STERILE WATER 3 ML VIA NEB CUP, 2X/DAY FOR 28 DAYS ON AND 28 DAYS OFF
  19. STERILE WATER [Concomitant]
     Active Substance: WATER
     Dosage: 3 ML TO MIX EACH DOSE OF COLISTIMETHATE, 2X/DAY FOR 28 DAYS ON AND 28 DAYS OFF (MAY USE 0.9% NS IF S
  20. SODIUM CHLORIDE PF [Concomitant]
     Dosage: 3 ML ADDED TO CLOSTIMETHATE 150 MG VIAL ,GENTLY SWIRL, ADD TO NEBULIZER CUP, 2X/DAY FOR 28 DAYS ON A
  21. FLEXERIL [Concomitant]
     Active Substance: CYCLOBENZAPRINE HYDROCHLORIDE
     Dosage: 10 MG, AT BEDTIME
     Route: 048
  22. LEXAPRO [Concomitant]
     Active Substance: ESCITALOPRAM OXALATE
     Dosage: 1 TABLET (20 MG TOTAL), 1X/DAY
     Route: 048
  23. FLONASE [Concomitant]
     Active Substance: FLUTICASONE PROPIONATE
     Dosage: 1 SPRAY IN BOTH NOSTRILS, 2X/DAY
     Route: 045
  24. PREVACID [Concomitant]
     Active Substance: LANSOPRAZOLE
     Dosage: 1 CAPSULE (30 MG), 2X/DAY BEFORE BREAKFAST AND DINNER (DO NOT CRUSH OR CHEW)
     Route: 048
  25. XYZAL [Concomitant]
     Active Substance: LEVOCETIRIZINE DIHYDROCHLORIDE
     Dosage: 1 TABLET (5 MG), EVERY EVENING
     Route: 048
  26. NAMENDA [Concomitant]
     Active Substance: MEMANTINE HYDROCHLORIDE
     Dosage: 1 TABLET (10 MG), 2X/DAY
     Route: 048
  27. MVW COMPLETE FORMULA MULTIVIT [Concomitant]
     Dosage: 2 CAPSULES, 2X/DAY
     Route: 048
     Dates: end: 20220118
  28. MVW COMPLETE FORMULA MULTIVIT [Concomitant]
     Dosage: 1 CAPSULES, 2X/DAY
     Dates: start: 20220119
  29. RETIN-A [Concomitant]
     Active Substance: TRETINOIN
     Dosage: APPLY THINLY 1 APPLICATION TO AFFECTED AREA, AT BEDTIME AS NEEDED
     Route: 061
  30. ACCOLATE [Concomitant]
     Active Substance: ZAFIRLUKAST
     Dosage: 1 TABLET (20 MG TOTAL), 1X/DAY
     Route: 048
  31. ZENPEP [Concomitant]
     Active Substance: PANCRELIPASE AMYLASE\PANCRELIPASE LIPASE\PANCRELIPASE PROTEASE
     Dosage: 4 CAPSULES WITH MEALS, 3X/DAY
  32. ZENPEP [Concomitant]
     Active Substance: PANCRELIPASE AMYLASE\PANCRELIPASE LIPASE\PANCRELIPASE PROTEASE
     Dosage: 3 CAPSULES WITH SNACKS, 3X/DAY
     Dates: start: 20220119

REACTIONS (7)
  - Infective pulmonary exacerbation of cystic fibrosis [Recovering/Resolving]
  - Infective exacerbation of bronchiectasis [Recovering/Resolving]
  - Pseudomonas infection [Recovering/Resolving]
  - Chronic sinusitis [Recovering/Resolving]
  - Central venous catheter removal [Recovered/Resolved]
  - Pain [Recovering/Resolving]
  - Pulmonary function test decreased [Recovering/Resolving]

NARRATIVE: CASE EVENT DATE: 20211222
